FAERS Safety Report 5901518-2 (Version None)
Quarter: 2008Q3

REPORT INFORMATION
  Report Type: 
  Country: None (occurrence: None)
  Receive Date: 20080926
  Receipt Date: 20080926
  Transmission Date: 20090109
  Serious: Yes (Other)
  Sender: FDA-Public Use
  Company Number: None

PATIENT
  Sex: Male

DRUGS (1)
  1. KADIAN [Suspect]

REACTIONS (3)
  - DEHYDRATION [None]
  - OVERDOSE [None]
  - RENAL IMPAIRMENT [None]
